FAERS Safety Report 7502655-1 (Version None)
Quarter: 2011Q2

REPORT INFORMATION
  Report Type: 
  Country: None (occurrence: None)
  Receive Date: 20110525
  Receipt Date: 20110513
  Transmission Date: 20111010
  Serious: Yes (Other)
  Sender: FDA-Public Use
  Company Number: PHHY2011AR41523

PATIENT
  Sex: Female

DRUGS (1)
  1. DIOVAN [Suspect]
     Indication: HYPERTENSION
     Dosage: 1 DF, 320 MG DAILY

REACTIONS (5)
  - SPINAL FRACTURE [None]
  - FALL [None]
  - INJURY [None]
  - SPINAL COLUMN INJURY [None]
  - BLOOD PRESSURE DECREASED [None]
